FAERS Safety Report 8016622-5 (Version None)
Quarter: 2011Q4

REPORT INFORMATION
  Report Type: 
  Country: None (occurrence: None)
  Receive Date: 20111231
  Receipt Date: 20111221
  Transmission Date: 20120403
  Serious: Yes (Other)
  Sender: FDA-Public Use
  Company Number: CHPA2011CA018482

PATIENT
  Sex: Female

DRUGS (1)
  1. NEOCITRAN EXTRA STRENGTH COLDS AND FLU [Suspect]
     Indication: NASOPHARYNGITIS
     Dosage: 1 DF, QHS
     Route: 048

REACTIONS (2)
  - COELIAC DISEASE [None]
  - MATERNAL EXPOSURE DURING PREGNANCY [None]
